FAERS Safety Report 15679233 (Version 1)
Quarter: 2018Q4

REPORT INFORMATION
  Report Type: Spontaneous
  Country: US (occurrence: US)
  Receive Date: 20181203
  Receipt Date: 20181203
  Transmission Date: 20190205
  Serious: No
  Sender: FDA-Public Use
  Company Number: US-LUPIN PHARMACEUTICALS INC.-2018-03605

PATIENT
  Age: 57 Year
  Sex: Male
  Weight: 90 kg

DRUGS (2)
  1. GAVILAX [Suspect]
     Active Substance: POLYETHYLENE GLYCOL 3350
     Dosage: SECOND DOSE IN THE EVENING
     Route: 048
     Dates: end: 20180502
  2. GAVILAX [Suspect]
     Active Substance: POLYETHYLENE GLYCOL 3350
     Indication: BOWEL PREPARATION
     Dosage: FIRST DOSE
     Route: 048
     Dates: start: 20180502

REACTIONS (1)
  - Vomiting [Recovered/Resolved]

NARRATIVE: CASE EVENT DATE: 20180502
